FAERS Safety Report 15705901 (Version 1)
Quarter: 2018Q4

REPORT INFORMATION
  Report Type: Spontaneous
  Country: SE (occurrence: SE)
  Receive Date: 20181210
  Receipt Date: 20181210
  Transmission Date: 20190205
  Serious: Yes (Other)
  Sender: FDA-Public Use
  Company Number: SE-TEVA-2018-SE-984416

PATIENT
  Age: 70 Year
  Sex: Male

DRUGS (5)
  1. LOSARTAN/HYDROKLORTIAZID [Suspect]
     Active Substance: HYDROCHLOROTHIAZIDE\LOSARTAN
     Route: 065
     Dates: end: 20131213
  2. URSOFALK [Concomitant]
     Active Substance: URSODIOL
  3. CIALIS [Concomitant]
     Active Substance: TADALAFIL
  4. CRESTOR [Concomitant]
     Active Substance: ROSUVASTATIN CALCIUM
     Dates: end: 20131216
  5. BEHEPAN [Concomitant]
     Active Substance: HYDROXOCOBALAMIN

REACTIONS (1)
  - Syncope [Unknown]

NARRATIVE: CASE EVENT DATE: 20131213
